FAERS Safety Report 6254040-0 (Version None)
Quarter: 2009Q3

REPORT INFORMATION
  Report Type: 
  Country: None (occurrence: None)
  Receive Date: 20090702
  Receipt Date: 20090623
  Transmission Date: 20100115
  Serious: Yes (Other)
  Sender: FDA-Public Use
  Company Number: BR-BAYER-200819069LA

PATIENT
  Age: 42 Year
  Sex: Female

DRUGS (2)
  1. MIRENA [Suspect]
     Indication: CONTRACEPTION
     Dosage: FREQUENCY: CONTINUOUS
     Route: 015
     Dates: start: 20050101, end: 20081101
  2. LUVOX [Concomitant]
     Indication: DEPRESSION
     Dosage: UNIT DOSE: 100 MG
     Route: 048
     Dates: start: 20000101

REACTIONS (3)
  - DEAFNESS [None]
  - OTOSCLEROSIS [None]
  - TINNITUS [None]
